FAERS Safety Report 23856082 (Version 1)
Quarter: 2024Q2

REPORT INFORMATION
  Report Type: Other
  Country: US (occurrence: None)
  Receive Date: 20240515
  Receipt Date: 20240515
  Transmission Date: 20240716
  Serious: No
  Sender: FDA-Public Use
  Company Number: US-ROCHE-3133424

PATIENT
  Age: 53 Year
  Sex: Male

DRUGS (7)
  1. OCREVUS [Suspect]
     Active Substance: OCRELIZUMAB
     Indication: Multiple sclerosis
     Dosage: YES
     Route: 065
     Dates: start: 20180314
  2. GABAPENTIN [Concomitant]
     Active Substance: GABAPENTIN
  3. BACLOFEN [Concomitant]
     Active Substance: BACLOFEN
  4. PRIMIDONE [Concomitant]
     Active Substance: PRIMIDONE
  5. CARBAMAZEPINE [Concomitant]
     Active Substance: CARBAMAZEPINE
  6. VENLAFAXINE [Concomitant]
     Active Substance: VENLAFAXINE HYDROCHLORIDE
  7. AMPHETAMINE;DEXTROAMPHETAMINE [Concomitant]

REACTIONS (5)
  - Skin lesion [Not Recovered/Not Resolved]
  - Skin ulcer [Not Recovered/Not Resolved]
  - Immunosuppression [Unknown]
  - Immune system disorder [Not Recovered/Not Resolved]
  - Herpes simplex [Not Recovered/Not Resolved]
